FAERS Safety Report 9348119 (Version 1)
Quarter: 2013Q2

REPORT INFORMATION
  Report Type: Spontaneous
  Country: US (occurrence: US)
  Receive Date: 20130614
  Receipt Date: 20130614
  Transmission Date: 20140414
  Serious: Yes (Other)
  Sender: FDA-Public Use
  Company Number: US-ACCORD-017970

PATIENT
  Age: 51 Year
  Sex: Male
  Weight: 82.73 kg

DRUGS (3)
  1. QUETIAPINE FUMARATE [Suspect]
     Indication: SLEEP DISORDER
     Dosage: ACCORD BRAND OF QUETIAPINE, DAILY AT BEDTIME
     Route: 048
     Dates: start: 20130524
  2. DIVALPROEX [Suspect]
     Indication: PRODUCT USED FOR UNKNOWN INDICATION
     Dosage: DIVALPROEX ER DOSE UNIT- 500 MG
     Route: 048
  3. LEVOTHYROXINE [Concomitant]
     Indication: PRODUCT USED FOR UNKNOWN INDICATION
     Route: 048

REACTIONS (5)
  - Insomnia [Not Recovered/Not Resolved]
  - Headache [Not Recovered/Not Resolved]
  - Nightmare [Not Recovered/Not Resolved]
  - Product substitution issue [Unknown]
  - Off label use [Unknown]
